FAERS Safety Report 5570457-1 (Version None)
Quarter: 2007Q4

REPORT INFORMATION
  Report Type: 
  Country: None (occurrence: None)
  Receive Date: 20071221
  Receipt Date: 20070914
  Transmission Date: 20080405
  Serious: No
  Sender: FDA-Public Use
  Company Number: US-BRISTOL-MYERS SQUIBB COMPANY-13908504

PATIENT
  Age: 55 Year
  Sex: Female
  Weight: 43 kg

DRUGS (6)
  1. ORENCIA [Suspect]
     Indication: RHEUMATOID ARTHRITIS
     Route: 042
     Dates: start: 20061101
  2. CELEBREX [Concomitant]
  3. PREDNISONE [Concomitant]
  4. CALCIUM [Concomitant]
  5. ACTONEL [Concomitant]
  6. ACIDOPHILUS [Concomitant]

REACTIONS (4)
  - ANOREXIA [None]
  - ARTHRALGIA [None]
  - INFECTION [None]
  - WEIGHT DECREASED [None]
